FAERS Safety Report 15215724 (Version 3)
Quarter: 2019Q1

REPORT INFORMATION
  Report Type: Spontaneous
  Country: US (occurrence: US)
  Receive Date: 20180730
  Receipt Date: 20190225
  Transmission Date: 20190417
  Serious: Yes (Other)
  Sender: FDA-Public Use
  Company Number: US-MERZ NORTH AMERICA, INC.-18MRZ-00386

PATIENT
  Age: 62 Year
  Sex: Female

DRUGS (1)
  1. XEOMIN [Suspect]
     Active Substance: INCOBOTULINUMTOXINA
     Indication: SKIN COSMETIC PROCEDURE
     Dosage: 32 UNITS / FOLLOW UP REPORTED 12 UNITS
     Dates: start: 20180629, end: 20180629

REACTIONS (5)
  - Laryngospasm [Unknown]
  - Adverse drug reaction [Recovering/Resolving]
  - Speech disorder [Unknown]
  - Gastrooesophageal reflux disease [Unknown]
  - Dysphagia [Not Recovered/Not Resolved]

NARRATIVE: CASE EVENT DATE: 20180708
